FAERS Safety Report 8315447 (Version 2)
Quarter: 2013Q1

REPORT INFORMATION
  Report Type: Spontaneous
  Country: US (occurrence: US)
  Receive Date: 20111229
  Receipt Date: 20130221
  Transmission Date: 20140127
  Serious: Yes (Life-Threatening, Congenital Anomaly, Other)
  Sender: FDA-Public Use
  Company Number: US-PFIZER INC-2011289487

PATIENT
  Sex: Male

DRUGS (20)
  1. ZOLOFT [Suspect]
     Dosage: UNK
     Route: 064
     Dates: start: 20101109
  2. ZOLOFT [Suspect]
     Dosage: UNK
     Route: 064
     Dates: start: 20101205
  3. HYDROCODONE W/ACETAMINOPHEN [Concomitant]
     Dosage: UNK
     Route: 064
  4. VALACICLOVIR HYDROCHLORIDE [Concomitant]
     Dosage: UNK
     Route: 064
  5. PROMETHAZINE W/CODEINE [Concomitant]
     Dosage: UNK
     Route: 064
  6. ACETAMINOPHEN W/CODEINE [Concomitant]
     Dosage: UNK
     Route: 064
  7. FLUCONAZOLE [Concomitant]
     Dosage: UNK
     Route: 064
  8. MOVIPREP [Concomitant]
     Dosage: UNK
     Route: 064
  9. CIPROFLOXACIN [Concomitant]
     Dosage: UNK
     Route: 064
  10. AZITHROMYCIN [Concomitant]
     Dosage: UNK
     Route: 064
  11. MUPIROCIN [Concomitant]
     Dosage: UNK
     Route: 064
  12. ZOVIRAX [Concomitant]
     Dosage: UNK
     Route: 064
  13. ORTHO EVRA [Concomitant]
     Dosage: UNK
     Route: 064
  14. CLARITHROMYCIN [Concomitant]
     Dosage: UNK
     Route: 064
  15. TUSSICAPS [Concomitant]
     Dosage: UNK
     Route: 064
  16. VISICOL [Concomitant]
     Dosage: UNK
     Route: 064
  17. ZYMAR [Concomitant]
     Dosage: UNK
     Route: 064
  18. NITROFURANTOIN [Concomitant]
     Dosage: UNK
     Route: 064
  19. NYSTATIN/TRIAMCINOLONE ACETONIDE [Concomitant]
     Dosage: UNK
     Route: 064
  20. CLINDAMYCIN [Concomitant]
     Dosage: UNK
     Route: 064

REACTIONS (5)
  - Maternal exposure timing unspecified [Unknown]
  - Cleft palate [Unknown]
  - Hypospadias [Unknown]
  - Congenital anomaly [Unknown]
  - Premature baby [Unknown]
